FAERS Safety Report 16923935 (Version 1)
Quarter: 2019Q4

REPORT INFORMATION
  Report Type: Spontaneous
  Country: US (occurrence: US)
  Receive Date: 20191016
  Receipt Date: 20191016
  Transmission Date: 20200122
  Serious: Yes (Other)
  Sender: FDA-Public Use
  Company Number: NVSC2019US002425

PATIENT
  Sex: Female

DRUGS (1)
  1. KISQALI [Suspect]
     Active Substance: RIBOCICLIB
     Indication: BREAST CANCER FEMALE
     Dosage: 200 MG, TID
     Route: 048

REACTIONS (6)
  - Epistaxis [Unknown]
  - Headache [Unknown]
  - Neutropenia [Unknown]
  - Secretion discharge [Unknown]
  - White blood cell count decreased [Unknown]
  - Fatigue [Unknown]
